FAERS Safety Report 9305143 (Version 1)
Quarter: 2013Q2

REPORT INFORMATION
  Report Type: Report from Study
  Country: BR (occurrence: BR)
  Receive Date: 20130523
  Receipt Date: 20130523
  Transmission Date: 20140414
  Serious: Yes (Death, Other)
  Sender: FDA-Public Use
  Company Number: PHHY2013BR051373

PATIENT
  Sex: Male
  Weight: 58 kg

DRUGS (1)
  1. TRILEPTAL [Suspect]
     Dosage: UNK UKN, UNK

REACTIONS (3)
  - Pneumonia [Fatal]
  - Cerebrovascular accident [Recovered/Resolved]
  - Arrhythmia [Not Recovered/Not Resolved]
